FAERS Safety Report 17358630 (Version 4)
Quarter: 2020Q2

REPORT INFORMATION
  Report Type: Report from Study
  Country: None (occurrence: NL)
  Receive Date: 20200201
  Receipt Date: 20200515
  Transmission Date: 20200713
  Serious: Yes (Hospitalization, Other)
  Sender: FDA-Public Use
  Company Number: NL-ABBVIE-19S-114-2729255-00

PATIENT
  Age: 48 Year
  Sex: Male

DRUGS (5)
  1. DUODOPA [Suspect]
     Active Substance: CARBIDOPA\LEVODOPA
     Dosage: MORNING DOSE 6 CONTINUOUS DOSE 1.9 EXTRA DOSE 1.5.
     Route: 050
  2. LEVODOPA [Concomitant]
     Active Substance: LEVODOPA
     Indication: PARKINSON^S DISEASE
  3. DUODOPA [Suspect]
     Active Substance: CARBIDOPA\LEVODOPA
     Dosage: AVERAGE NUMBER OF EXTRA DOSES PER DAY: 0
     Route: 050
  4. LEVODOPA/CARBIDOPA [Concomitant]
     Active Substance: CARBIDOPA\LEVODOPA
     Indication: PARKINSON^S DISEASE
  5. DUODOPA [Suspect]
     Active Substance: CARBIDOPA\LEVODOPA
     Indication: PARKINSON^S DISEASE
     Route: 050
     Dates: start: 20180626

REACTIONS (19)
  - Parkinson^s disease [Not Recovered/Not Resolved]
  - Muscle rigidity [Recovered/Resolved]
  - Freezing phenomenon [Not Recovered/Not Resolved]
  - Abdominal pain [Not Recovered/Not Resolved]
  - Loss of personal independence in daily activities [Not Recovered/Not Resolved]
  - Suicidal ideation [Not Recovered/Not Resolved]
  - On and off phenomenon [Recovered/Resolved]
  - Mood swings [Not Recovered/Not Resolved]
  - Tension [Not Recovered/Not Resolved]
  - Bradykinesia [Recovered/Resolved]
  - Dysphagia [Not Recovered/Not Resolved]
  - Haemoptysis [Not Recovered/Not Resolved]
  - Mobility decreased [Not Recovered/Not Resolved]
  - Muscle spasms [Not Recovered/Not Resolved]
  - Appendicitis [Recovered/Resolved]
  - Emotional disorder [Not Recovered/Not Resolved]
  - Dyskinesia [Recovered/Resolved]
  - Memory impairment [Not Recovered/Not Resolved]
  - Depression [Recovering/Resolving]

NARRATIVE: CASE EVENT DATE: 202001
